FAERS Safety Report 8858790 (Version 1)
Quarter: 2012Q4

REPORT INFORMATION
  Report Type: 
  Country: US (occurrence: None)
  Receive Date: 20121023
  Receipt Date: 20121023
  Transmission Date: 20130627
  Serious: Yes (Hospitalization)
  Sender: FDA-Public Use
  Company Number: None

PATIENT
  Sex: Female
  Weight: 75.8 kg

DRUGS (1)
  1. EVEROLIMUS [Suspect]
     Dates: start: 20110525, end: 20111021

REACTIONS (3)
  - Blood calcium decreased [None]
  - Blood creatinine decreased [None]
  - Electrocardiogram QT prolonged [None]
